FAERS Safety Report 9226255 (Version 1)
Quarter: 2013Q2

REPORT INFORMATION
  Report Type: Spontaneous
  Country: FR (occurrence: FR)
  Receive Date: 20130411
  Receipt Date: 20130411
  Transmission Date: 20140414
  Serious: Yes (Hospitalization, Other)
  Sender: FDA-Public Use
  Company Number: FR-PFIZER INC-2013110369

PATIENT
  Age: 30 Year
  Sex: Female

DRUGS (6)
  1. TRIATEC [Suspect]
     Indication: NEPHROPATHY
     Dosage: 2.5 MG, UNK
     Route: 048
     Dates: start: 201207, end: 201301
  2. AUGMENTIN [Suspect]
     Indication: DENTAL CARE
     Dosage: 1 G, 2X/DAY
     Route: 048
     Dates: start: 201301, end: 201301
  3. SPIFEN [Suspect]
     Indication: PAIN
     Dosage: UNK
     Route: 048
     Dates: start: 201301, end: 201301
  4. SPECIAFOLDINE [Concomitant]
     Dosage: UNK
  5. ORACILLINE [Concomitant]
     Indication: SPLENECTOMY
     Dosage: UNK
     Dates: start: 2009
  6. PARACETAMOL [Concomitant]
     Dosage: UNK

REACTIONS (12)
  - Drug reaction with eosinophilia and systemic symptoms [Recovered/Resolved]
  - Rash maculo-papular [Unknown]
  - Face oedema [Unknown]
  - Pyrexia [Unknown]
  - Sweat gland disorder [Unknown]
  - Skin exfoliation [Unknown]
  - Blister [Unknown]
  - Glossitis [Unknown]
  - Hepatocellular injury [Unknown]
  - C-reactive protein increased [Unknown]
  - Proteinuria [Unknown]
  - Culture urine positive [Unknown]
